FAERS Safety Report 19062514 (Version 1)
Quarter: 2021Q1

REPORT INFORMATION
  Report Type: Spontaneous
  Country: IR (occurrence: IR)
  Receive Date: 20210326
  Receipt Date: 20210326
  Transmission Date: 20210420
  Serious: Yes (Hospitalization, Other)
  Sender: FDA-Public Use
  Company Number: IR-INDOCO-000134

PATIENT
  Age: 45 Day
  Sex: Female
  Weight: 4.8 kg

DRUGS (1)
  1. BRIMONIDINE [Suspect]
     Active Substance: BRIMONIDINE TARTRATE
     Indication: RHINORRHOEA
     Route: 045

REACTIONS (10)
  - Seizure [Recovered/Resolved]
  - Cyanosis central [Recovered/Resolved]
  - Toxicity to various agents [Unknown]
  - Incorrect route of product administration [Unknown]
  - Coma [Recovered/Resolved]
  - Hypotonia [Recovered/Resolved]
  - Wrong product administered [Unknown]
  - Hypotension [Recovered/Resolved]
  - Bradycardia [Recovered/Resolved]
  - Apnoea [Recovered/Resolved]
